FAERS Safety Report 14148083 (Version 1)
Quarter: 2017Q4

REPORT INFORMATION
  Report Type: Spontaneous
  Country: CA (occurrence: CA)
  Receive Date: 20171101
  Receipt Date: 20171101
  Transmission Date: 20180321
  Serious: Yes (Other)
  Sender: FDA-Public Use
  Company Number: CA-ROCHE-2015081

PATIENT
  Age: 68 Year
  Sex: Male

DRUGS (3)
  1. XOLAIR [Suspect]
     Active Substance: OMALIZUMAB
     Indication: ASTHMA
     Route: 058
     Dates: start: 20060123
  2. XOLAIR [Suspect]
     Active Substance: OMALIZUMAB
     Route: 058
     Dates: start: 20170502
  3. XOLAIR [Suspect]
     Active Substance: OMALIZUMAB
     Route: 058
     Dates: start: 20170530

REACTIONS (6)
  - Forced expiratory volume decreased [Unknown]
  - Peripheral swelling [Unknown]
  - Restrictive pulmonary disease [Unknown]
  - Cellulitis [Unknown]
  - Asthma [Unknown]
  - Skin infection [Unknown]

NARRATIVE: CASE EVENT DATE: 20151013
